FAERS Safety Report 20896350 (Version 1)
Quarter: 2022Q2

REPORT INFORMATION
  Report Type: Spontaneous
  Country: GB (occurrence: GB)
  Receive Date: 20220531
  Receipt Date: 20220531
  Transmission Date: 20220720
  Serious: Yes (Other)
  Sender: FDA-Public Use
  Company Number: GB-PFIZER INC-202200700287

PATIENT
  Age: 77 Year
  Sex: Female

DRUGS (13)
  1. LETROZOLE [Suspect]
     Active Substance: LETROZOLE
     Indication: Product used for unknown indication
     Dosage: 2.5 MILLIGRAM, QD, 2.5 MG, DAILY
     Route: 048
  2. DENOSUMAB [Suspect]
     Active Substance: DENOSUMAB
     Indication: Product used for unknown indication
     Dosage: UNK
  3. IBRANCE [Suspect]
     Active Substance: PALBOCICLIB
     Indication: Breast cancer metastatic
     Dosage: UNK
  4. Adcal [Concomitant]
     Dosage: UNK, BID, 2X/DAY
  5. ALLOPURINOL [Concomitant]
     Active Substance: ALLOPURINOL
     Dosage: 300 MILLIGRAM, BID, 300 MG, 2X/DAY
     Route: 048
  6. ATORVASTATIN [Concomitant]
     Active Substance: ATORVASTATIN
     Dosage: 10 MILLIGRAM, QD, 10 MG, 1X/DAY
  7. ETORICOXIB [Concomitant]
     Active Substance: ETORICOXIB
     Dosage: 60 MILLIGRAM, QD, 60 MG, DAILY
     Dates: start: 20200901
  8. IBUPROFEN [Concomitant]
     Active Substance: IBUPROFEN
     Dosage: 400 MILLIGRAM, TID, 400 MG, 3X/DAY
     Route: 048
     Dates: end: 20200901
  9. LOSARTAN [Concomitant]
     Active Substance: LOSARTAN
     Dosage: 20 MILLIGRAM, QD, 20 MG, DAILY
     Route: 048
  10. MORPHINE SULFATE [Concomitant]
     Active Substance: MORPHINE SULFATE
     Dosage: 5 MILLIGRAM, BID, 5 MG, 2X/DAY
     Route: 048
     Dates: start: 20200901
  11. OMEPRAZOLE [Concomitant]
     Active Substance: OMEPRAZOLE
     Dosage: 20 MILLIGRAM, QD
     Route: 048
  12. MORPHINE SULFATE [Concomitant]
     Active Substance: MORPHINE SULFATE
     Dosage: UNK, PRN, 2.5-5 MG, AS NEEDED
     Dates: start: 20200901
  13. ACETAMINOPHEN [Concomitant]
     Active Substance: ACETAMINOPHEN
     Dosage: 1 GRAM, QID, 1 G, 4X/DAY
     Dates: start: 20200901

REACTIONS (4)
  - Back pain [Unknown]
  - Groin pain [Unknown]
  - Chest pain [Unknown]
  - Paraesthesia [Unknown]
